FAERS Safety Report 9357941 (Version 2)
Quarter: 2013Q2

REPORT INFORMATION
  Report Type: Spontaneous
  Country: JP (occurrence: JP)
  Receive Date: 20130620
  Receipt Date: 20130625
  Transmission Date: 20140414
  Serious: Yes (Hospitalization, Other)
  Sender: FDA-Public Use
  Company Number: JP-PFIZER INC-2013182773

PATIENT
  Age: 87 Year
  Sex: Male

DRUGS (1)
  1. TRIAZOLAM [Suspect]
     Indication: INSOMNIA
     Dosage: 0.25 MG, DAILY

REACTIONS (3)
  - Pneumonia aspiration [Unknown]
  - Respiratory depression [Unknown]
  - Parkinsonism [Unknown]
